FAERS Safety Report 5024511-3 (Version None)
Quarter: 2006Q2

REPORT INFORMATION
  Report Type: 
  Country: None (occurrence: None)
  Receive Date: 20060613
  Receipt Date: 20060420
  Transmission Date: 20061013
  Serious: Yes (Hospitalization, Other)
  Sender: FDA-Public Use
  Company Number: PHEH2006US05246

PATIENT
  Age: 75 Year
  Sex: Female

DRUGS (21)
  1. FORADIL [Suspect]
     Dosage: 12 MCG, 1 PUFF Q12
  2. ALBUTEROL [Concomitant]
     Dosage: Q4H WITH ATROVENT VIA NEBULIZER
  3. ATROVENT [Concomitant]
     Dosage: Q4H WITH ALUTEROL VIA NEBULIZER
  4. LASIX [Concomitant]
     Dosage: 20 MG, QD
     Route: 048
  5. POTASSIUM [Concomitant]
     Dosage: 10 MEQ, QD
     Route: 048
  6. OXYGEN [Concomitant]
  7. CALAN - SLOW RELEASE [Concomitant]
     Dosage: 120 MG, QD
     Route: 048
  8. FOSAMAX [Concomitant]
     Dosage: 70 MG, QW
  9. ASPIRIN [Concomitant]
     Dosage: 81 MG, QD
     Route: 048
  10. CALCIUM CARBONATE [Concomitant]
     Dosage: 600 MG, BID
     Route: 048
  11. SENNA [Concomitant]
     Dosage: 2 TABLETS QD
     Route: 048
  12. SENNA [Concomitant]
     Dosage: UNK, PRN
  13. PREDNISONE [Concomitant]
     Dosage: TAPERING DOSES STARTING WITH 40 MG
  14. PREDNISONE [Concomitant]
     Dosage: 5 MG, QD
     Route: 048
  15. PREDNISONE [Concomitant]
     Dosage: TAPERING 30 MG
  16. PREDNISONE [Concomitant]
     Dosage: TAPERING, 20 MG
  17. PREDNISONE [Concomitant]
     Dosage: TAPERING, 10 MG
  18. PREVACID [Concomitant]
     Dosage: 30 MG, QD
     Route: 048
  19. CEFTIN [Concomitant]
     Dosage: 500 MG, Q12H
     Route: 048
  20. HUMIBID LA [Concomitant]
     Dosage: 1200 MG, BID
     Route: 048
  21. DOCUSATE [Concomitant]
     Dosage: 100 MG, BID
     Route: 048

REACTIONS (24)
  - BLOOD GASES ABNORMAL [None]
  - BLOOD PH DECREASED [None]
  - BREATH SOUNDS ABNORMAL [None]
  - CANDIDIASIS [None]
  - CHRONIC OBSTRUCTIVE PULMONARY DISEASE [None]
  - CONDITION AGGRAVATED [None]
  - CONFUSIONAL STATE [None]
  - DEVICE MALFUNCTION [None]
  - DRUG INEFFECTIVE [None]
  - DYSPNOEA [None]
  - HYPERTENSION [None]
  - INCREASED UPPER AIRWAY SECRETION [None]
  - LUNG INFILTRATION [None]
  - NEUTROPHIL COUNT INCREASED [None]
  - PHARMACEUTICAL PRODUCT COMPLAINT [None]
  - PNEUMONIA [None]
  - PNEUMONIA STAPHYLOCOCCAL [None]
  - PRODUCTIVE COUGH [None]
  - RESPIRATORY FAILURE [None]
  - SPUTUM DISCOLOURED [None]
  - TACHYPNOEA [None]
  - TOTAL LUNG CAPACITY DECREASED [None]
  - WHEEZING [None]
  - WHITE BLOOD CELL COUNT INCREASED [None]
